FAERS Safety Report 12909158 (Version 1)
Quarter: 2016Q4

REPORT INFORMATION
  Report Type: Spontaneous
  Country: US (occurrence: US)
  Receive Date: 20161103
  Receipt Date: 20161103
  Transmission Date: 20170207
  Serious: No
  Sender: FDA-Public Use
  Company Number: US-JAZZ-2016-US-016750

PATIENT
  Sex: Male

DRUGS (37)
  1. BENAZEPRIL [Concomitant]
     Active Substance: BENAZEPRIL HYDROCHLORIDE
  2. METHOCARBAMOL. [Concomitant]
     Active Substance: METHOCARBAMOL
  3. VITAMIN D3 [Concomitant]
     Active Substance: CHOLECALCIFEROL
  4. TERBINAFINE HCL [Concomitant]
     Active Substance: TERBINAFINE HYDROCHLORIDE
  5. XYREM [Suspect]
     Active Substance: SODIUM OXYBATE
     Dosage: 4.5 G, BID
     Route: 048
     Dates: start: 200402
  6. CITRACAL + D [Concomitant]
     Active Substance: CALCIUM CITRATE\VITAMIN D
  7. DOXYCYCLINE HYCLATE. [Concomitant]
     Active Substance: DOXYCYCLINE HYCLATE
  8. HYDROCODONE BITARTRATE AND ACETAMINOPHEN [Concomitant]
     Active Substance: ACETAMINOPHEN\HYDROCODONE BITARTRATE
  9. OCUVITE [Concomitant]
     Active Substance: VITAMINS
  10. STOOL SOFTENER (DOCUSATE CALCIUM) [Concomitant]
     Active Substance: DOCUSATE CALCIUM
  11. FLUOXETINE HCL [Concomitant]
     Active Substance: FLUOXETINE HYDROCHLORIDE
  12. MIRAPEX [Concomitant]
     Active Substance: PRAMIPEXOLE DIHYDROCHLORIDE
  13. PLAVIX [Concomitant]
     Active Substance: CLOPIDOGREL BISULFATE
  14. PRAVASTATIN SODIUM. [Concomitant]
     Active Substance: PRAVASTATIN SODIUM
  15. XYREM [Suspect]
     Active Substance: SODIUM OXYBATE
     Indication: NARCOLEPSY
     Dosage: 2.25 G, BID
     Route: 048
     Dates: start: 200307, end: 200310
  16. DEXEDRINE [Concomitant]
     Active Substance: DEXTROAMPHETAMINE SULFATE
  17. DEXTROAMPHETAMINE. [Concomitant]
     Active Substance: DEXTROAMPHETAMINE
  18. VIAGRA [Concomitant]
     Active Substance: SILDENAFIL CITRATE
  19. ASPIRIN. [Concomitant]
     Active Substance: ASPIRIN
  20. CENTRUM [Concomitant]
     Active Substance: VITAMINS
  21. SULINDAC. [Concomitant]
     Active Substance: SULINDAC
  22. CARVEDILOL. [Concomitant]
     Active Substance: CARVEDILOL
  23. FISH OIL [Concomitant]
     Active Substance: FISH OIL
  24. MULTIVITAMIN [Concomitant]
     Active Substance: VITAMINS
  25. PROCTOZONE HC [Concomitant]
     Active Substance: HYDROCORTISONE
  26. CALCIUM CARBIMIDE [Concomitant]
     Active Substance: CALCIUM CARBIMIDE
  27. GABAPENTIN. [Concomitant]
     Active Substance: GABAPENTIN
  28. MIACALCIN [Concomitant]
     Active Substance: CALCITONIN SALMON
  29. XYREM [Suspect]
     Active Substance: SODIUM OXYBATE
     Indication: CATAPLEXY
     Dosage: DOSE ADJUSTMENTS
     Route: 048
     Dates: start: 200310, end: 200402
  30. CELEBREX [Suspect]
     Active Substance: CELECOXIB
     Indication: PRODUCT USED FOR UNKNOWN INDICATION
     Route: 048
  31. BUMETANIDE. [Concomitant]
     Active Substance: BUMETANIDE
  32. PRAMIPEXOLE. [Concomitant]
     Active Substance: PRAMIPEXOLE
  33. RANITIDINE. [Concomitant]
     Active Substance: RANITIDINE
  34. FERROUS SULFATE. [Concomitant]
     Active Substance: FERROUS SULFATE
  35. SYSTANE BALANCE [Concomitant]
     Active Substance: PROPYLENE GLYCOL
  36. NYSTATIN/TRIAMCINOLONE [Concomitant]
     Active Substance: NYSTATIN\TRIAMCINOLONE
  37. SPIRONOLACTONE. [Concomitant]
     Active Substance: SPIRONOLACTONE

REACTIONS (5)
  - Osteopenia [Not Recovered/Not Resolved]
  - Pain in extremity [Not Recovered/Not Resolved]
  - Inflammation [Unknown]
  - Drug ineffective [Not Recovered/Not Resolved]
  - Arthritis [Not Recovered/Not Resolved]
